FAERS Safety Report 10685210 (Version 1)
Quarter: 2014Q4

REPORT INFORMATION
  Report Type: Spontaneous
  Country: US (occurrence: US)
  Receive Date: 20141231
  Receipt Date: 20141231
  Transmission Date: 20150529
  Serious: No
  Sender: FDA-Public Use
  Company Number: US-BAYER-2014-191329

PATIENT
  Sex: Female

DRUGS (1)
  1. GADAVIST [Suspect]
     Active Substance: GADOBUTROL
     Indication: NUCLEAR MAGNETIC RESONANCE IMAGING ABDOMINAL
     Dosage: 9 ML, ONCE
     Dates: start: 20141228, end: 20141228

REACTIONS (3)
  - Pruritus [None]
  - Rash [None]
  - Product use issue [None]

NARRATIVE: CASE EVENT DATE: 20141228
